FAERS Safety Report 19978736 (Version 1)
Quarter: 2021Q4

REPORT INFORMATION
  Report Type: Spontaneous
  Country: IT (occurrence: IT)
  Receive Date: 20211020
  Receipt Date: 20211020
  Transmission Date: 20220303
  Serious: Yes (Hospitalization, Other)
  Sender: FDA-Public Use
  Company Number: IT-ABBVIE-21K-083-4127246-00

PATIENT
  Age: 45 Year
  Sex: Male

DRUGS (1)
  1. VALPROATE SODIUM [Suspect]
     Active Substance: VALPROATE SODIUM
     Indication: Product used for unknown indication
     Route: 048
     Dates: start: 20190326, end: 20190326

REACTIONS (4)
  - Sopor [Recovering/Resolving]
  - Intentional overdose [Unknown]
  - Drug abuse [Unknown]
  - Somnolence [Recovering/Resolving]
